FAERS Safety Report 11808621 (Version 1)
Quarter: 2015Q4

REPORT INFORMATION
  Report Type: Spontaneous
  Country: US (occurrence: US)
  Receive Date: 20151207
  Receipt Date: 20151207
  Transmission Date: 20160305
  Serious: No
  Sender: FDA-Public Use
  Company Number: US-ROCHE-1612682

PATIENT
  Sex: Female

DRUGS (1)
  1. ACTEMRA [Suspect]
     Active Substance: TOCILIZUMAB
     Indication: ARTHRITIS
     Dosage: 1 DOSE IN 2 WEEKS. THEN 1 DOSE EVERY WEEK.
     Route: 058

REACTIONS (1)
  - Rash pruritic [Unknown]
